FAERS Safety Report 13479723 (Version 2)
Quarter: 2018Q1

REPORT INFORMATION
  Report Type: Spontaneous
  Country: US (occurrence: US)
  Receive Date: 20170425
  Receipt Date: 20180306
  Transmission Date: 20180508
  Serious: No
  Sender: FDA-Public Use
  Company Number: US-009507513-1704USA004033

PATIENT
  Sex: Female

DRUGS (1)
  1. NEXPLANON [Suspect]
     Active Substance: ETONOGESTREL
     Indication: CONTRACEPTION
     Dosage: 1 ROD, UNK
     Route: 059
     Dates: end: 20170331

REACTIONS (4)
  - Implant site irritation [Unknown]
  - Implant site induration [Unknown]
  - Implant site erythema [Unknown]
  - Implant site swelling [Unknown]
